FAERS Safety Report 5332351-0 (Version None)
Quarter: 2007Q2

REPORT INFORMATION
  Report Type: 
  Country: None (occurrence: None)
  Receive Date: 20070523
  Receipt Date: 20070521
  Transmission Date: 20071010
  Serious: Yes (Other)
  Sender: FDA-Public Use
  Company Number: A0652169A

PATIENT
  Age: 28 Year
  Sex: Female

DRUGS (6)
  1. LAMICTAL [Suspect]
     Indication: EPILEPSY
     Route: 048
     Dates: start: 20070201
  2. ORAL CONTRACEPTIVE [Concomitant]
  3. CLARITIN [Concomitant]
  4. CODEINE COUGH SYRUP [Concomitant]
  5. ONE-A-DAY VITAMIN [Concomitant]
  6. ZITHROMAX [Concomitant]

REACTIONS (7)
  - CONVULSION [None]
  - DRUG INEFFECTIVE [None]
  - FACE INJURY [None]
  - FALL [None]
  - HOT FLUSH [None]
  - INSOMNIA [None]
  - PERIORBITAL HAEMATOMA [None]
